FAERS Safety Report 7465545-9 (Version None)
Quarter: 2011Q2

REPORT INFORMATION
  Report Type: 
  Country: None (occurrence: None)
  Receive Date: 20110509
  Receipt Date: 20110425
  Transmission Date: 20111010
  Serious: Yes (Congenital Anomaly, Other)
  Sender: FDA-Public Use
  Company Number: US-ROCHE-774667

PATIENT
  Sex: Male
  Weight: 2.1 kg

DRUGS (5)
  1. OMEPRAZOLE [Concomitant]
     Dosage: FREQUENCY: DAILY
  2. TACROLIMUS [Concomitant]
     Dosage: FREQUENCY: DAILY
  3. PREDNISONE [Concomitant]
     Dosage: FREQUENCY: DAILY
  4. FERROUS SULFATE TAB [Concomitant]
     Dosage: FREQUENCY: DAILY
  5. MYCOPHENOLATE MOFETIL [Suspect]
     Dosage: PER DAY, DISCONTINUED AT 3 MONTHS GESTATION WHEN THE PREGNANCY WAS DIAGNOSED
     Route: 064

REACTIONS (12)
  - SKULL MALFORMATION [None]
  - CRYPTORCHISM [None]
  - FOETAL DISORDER [None]
  - HYPOTONIA [None]
  - PTERYGIUM COLLI [None]
  - DEVELOPMENTAL DELAY [None]
  - SMALL FOR DATES BABY [None]
  - CONGENITAL MUSCULOSKELETAL ANOMALY [None]
  - MUSCULOSKELETAL DISORDER [None]
  - FOETAL GROWTH RESTRICTION [None]
  - CORONARY ARTERY DISEASE [None]
  - VISUAL IMPAIRMENT [None]
